FAERS Safety Report 9518323 (Version 1)
Quarter: 2013Q3

REPORT INFORMATION
  Report Type: Spontaneous
  Country: DE (occurrence: None)
  Receive Date: 20130910
  Receipt Date: 20130910
  Transmission Date: 20140515
  Serious: Yes (Hospitalization)
  Sender: FDA-Public Use
  Company Number: DE-JNJFOC-20130805740

PATIENT
  Age: 63 Year
  Sex: Male

DRUGS (8)
  1. DECITABINE (DECITABINE) LYOPHILIZED POWDER [Suspect]
     Indication: ACUTE MYELOID LEUKAEMIA
     Dosage: 34.7 MG, UNKNOWN
     Dates: start: 20130712, end: 20130716
  2. AVALOX (MOFICLOXACIN HYDROCHLORIDE) [Concomitant]
  3. FLUCONAZOLE (FLUCONAZOLE) [Concomitant]
  4. CYKLOKAPRON (TRANEXAMIC ACID) [Concomitant]
  5. LYRICA (PREGABALIN) [Concomitant]
  6. SAROTEN (AMITRIPTYLINE HYDROCHLORIDE) [Concomitant]
  7. LINEZOLID (LINEZOLID) [Concomitant]
  8. PANTOPRAZOL (PANTOPRAZOLE) [Concomitant]

REACTIONS (1)
  - C-reactive protein increased [None]
